FAERS Safety Report 7440758-0 (Version None)
Quarter: 2011Q2

REPORT INFORMATION
  Report Type: 
  Country: None (occurrence: None)
  Receive Date: 20110427
  Receipt Date: 20110418
  Transmission Date: 20111010
  Serious: Yes (Hospitalization)
  Sender: FDA-Public Use
  Company Number: SE-ASTRAZENECA-2011SE22409

PATIENT
  Age: 95 Year
  Sex: Female

DRUGS (9)
  1. IMPUGAN [Concomitant]
  2. PANOCOD [Concomitant]
  3. LAKTULOS [Concomitant]
  4. DUROFERON [Concomitant]
  5. SPIRONOLAKTON [Concomitant]
  6. ACETYLCYSTEINE [Concomitant]
  7. SIFROL [Concomitant]
  8. VISCOTEARS [Concomitant]
  9. ATACAND [Suspect]
     Indication: CARDIAC FAILURE
     Route: 048
     Dates: end: 20110201

REACTIONS (1)
  - HYPOTENSION [None]
